FAERS Safety Report 16907701 (Version 4)
Quarter: 2020Q1

REPORT INFORMATION
  Report Type: Spontaneous
  Country: FR (occurrence: FR)
  Receive Date: 20191011
  Receipt Date: 20200130
  Transmission Date: 20200409
  Serious: Yes (Hospitalization, Other)
  Sender: FDA-Public Use
  Company Number: FR-AUROBINDO-AUR-APL-2019-065802

PATIENT
  Age: 76 Year
  Sex: Female
  Weight: 49 kg

DRUGS (33)
  1. MUCOMYST [Concomitant]
     Active Substance: ACETYLCYSTEINE
     Indication: PRODUCT USED FOR UNKNOWN INDICATION
     Dosage: 200 MILLIGRAM, 1 SACHET AT 8 AM, 12 PM AND 6 PM
     Route: 048
     Dates: start: 20171113, end: 20171116
  2. DOLIPRANE [Concomitant]
     Active Substance: ACETAMINOPHEN
     Indication: PRODUCT USED FOR UNKNOWN INDICATION
     Dosage: 500 MILLIGRAM, 2 CAPSULES AT 8 AM, 12 PM AND 6 PM
     Route: 065
     Dates: start: 20170308, end: 20171220
  3. DOLIPRANE [Concomitant]
     Active Substance: ACETAMINOPHEN
     Dosage: 500 MILLIGRAM, 2 CAPSULES AT 8 AM, 12 PM AND 6 PM
     Route: 065
     Dates: start: 20171221, end: 20171231
  4. XEROQUEL [Concomitant]
     Active Substance: QUETIAPINE FUMARATE
     Indication: PRODUCT USED FOR UNKNOWN INDICATION
     Dosage: 50 MILLIGRAM, 3 TABLET AT 6 PM
     Route: 065
     Dates: start: 20181217
  5. ABILIFY [Concomitant]
     Active Substance: ARIPIPRAZOLE
     Dosage: 10 MILLIGRAM, 2 ORODISPERSIBLE TABLET AT 8 AM
     Route: 065
     Dates: start: 20161001, end: 20171105
  6. ABILIFY [Concomitant]
     Active Substance: ARIPIPRAZOLE
     Dosage: 5 MILLIGRAM, 2 TABLETS AT 8 AM
     Route: 065
     Dates: start: 20171106, end: 20181216
  7. LOXEN L P [Concomitant]
     Active Substance: NICARDIPINE HYDROCHLORIDE
     Indication: PRODUCT USED FOR UNKNOWN INDICATION
     Dosage: 50 MILLIGRAM, TWO TIMES A DAY ( 1 CAPSULE AT 8 AM AND 6 PM)
     Route: 065
     Dates: start: 20161010, end: 20181231
  8. AVLOCARDYL [Concomitant]
     Active Substance: PROPRANOLOL HYDROCHLORIDE
     Indication: PRODUCT USED FOR UNKNOWN INDICATION
     Dosage: 40 MILLIGRAM, ONCE A DAY AT 8 AM
     Route: 065
     Dates: start: 20161001
  9. TEMESTA [Concomitant]
     Indication: PRODUCT USED FOR UNKNOWN INDICATION
     Dosage: 2.5 MILLIGRAM, 0.5 TABLET AT 8 AM AND 12 PM AND 1.5 TABLET AT 8 PM
     Route: 048
     Dates: start: 20170710, end: 20181218
  10. TRANSIPEG [Concomitant]
     Indication: CONSTIPATION
     Dosage: 5.9 GRAM, 2 SACHETS AT 8 AM
     Route: 065
     Dates: start: 20161001, end: 20170924
  11. SODIUM LAURILSULFATE [Concomitant]
     Indication: PRODUCT USED FOR UNKNOWN INDICATION
     Dosage: 2 MILLILITER,1 DROP AT 8 AM AND 6 PM
     Route: 001
     Dates: start: 20190207, end: 20190213
  12. ELIQUIS [Suspect]
     Active Substance: APIXABAN
     Dosage: 5 MILLIGRAM (1 TABLET AT 8 AM AND AT 6 PM)
     Route: 065
     Dates: start: 20190906
  13. CARBOCISTEINE [Concomitant]
     Active Substance: CARBOCYSTEINE
     Indication: PRODUCT USED FOR UNKNOWN INDICATION
     Dosage: 200 MILLILITER 1 TABLE SPOON AT 8 AM, 12 PM AND 6 PM
     Route: 065
     Dates: start: 20180412, end: 20180422
  14. ABILIFY [Concomitant]
     Active Substance: ARIPIPRAZOLE
     Dosage: 5 MILLIGRAM, ONCE A DAY ( 1 TABLET AT 8 AM)
     Route: 065
     Dates: start: 20181217
  15. ZYPREXA [Concomitant]
     Active Substance: OLANZAPINE
     Indication: PRODUCT USED FOR UNKNOWN INDICATION
     Dosage: 7.5 MILLIGRAM, 2 TABLETS AT 6 PM
     Route: 060
     Dates: start: 20170821, end: 20181130
  16. ZYPREXA [Concomitant]
     Active Substance: OLANZAPINE
     Dosage: 1 DOSAGE FORM, TWO TIMES A DAY (AT 8 AM AND 6 PM), 7.5 MILLIGRAM
     Route: 065
     Dates: start: 20181217
  17. FOSAVANCE [Concomitant]
     Active Substance: ALENDRONATE SODIUM\CHOLECALCIFEROL
     Indication: PRODUCT USED FOR UNKNOWN INDICATION
     Dosage: 1 DOSAGE FORM, ONCE A DAY (AT 8 AM)
     Route: 065
     Dates: start: 20161001
  18. ARIPIPRAZOLE. [Suspect]
     Active Substance: ARIPIPRAZOLE
     Indication: PSYCHOTIC DISORDER
     Dosage: 10 MILLIGRAM, ONCE A DAY
     Route: 048
     Dates: start: 20161001
  19. TEMESTA [Concomitant]
     Dosage: 2.5 MILLIGRAM, 0.5 TABLET AT 8 AM AND 12 PM AND 1 TABLET AT 8 PM
     Route: 048
     Dates: start: 20181219
  20. PIVALONE [Concomitant]
     Indication: PRODUCT USED FOR UNKNOWN INDICATION
     Dosage: UNK, 2 SPRAYS AT 8 AM, 12 PM AND AT 6 PM
     Route: 045
     Dates: start: 20180315, end: 20180320
  21. ELIQUIS [Suspect]
     Active Substance: APIXABAN
     Indication: VENOUS THROMBOSIS
     Dosage: 5 MILLIGRAM (2 TABLET AT 8 AM AND AT 6 PM)
     Route: 048
     Dates: start: 20170927, end: 20190829
  22. DUPHALAC [Concomitant]
     Active Substance: LACTULOSE
     Indication: CONSTIPATION
     Dosage: 10 GRAM, ONCE A DAY (2 SACHETS AT 8 AM)
     Route: 065
     Dates: start: 20170925
  23. PRETERAX [Concomitant]
     Active Substance: INDAPAMIDE\PERINDOPRIL
     Indication: PRODUCT USED FOR UNKNOWN INDICATION
     Dosage: 1 DOSAGE FORM, ONCE A DAY AT 8 AM, 2 MG/0.625 MG
     Route: 065
     Dates: start: 20161001
  24. SEROPLEX [Concomitant]
     Active Substance: ESCITALOPRAM OXALATE
     Indication: PRODUCT USED FOR UNKNOWN INDICATION
     Dosage: 10 MILLIGRAM, ONCE A DAY, (1 TABLET AT 8 AM)
     Route: 048
     Dates: start: 20181217
  25. DOLIPRANE [Concomitant]
     Active Substance: ACETAMINOPHEN
     Dosage: 500 MILLIGRAM, 2 CAPSULES AT 8 AM, 12 PM AND 6 PM
     Route: 065
     Dates: start: 20190325
  26. DOLIPRANE [Concomitant]
     Active Substance: ACETAMINOPHEN
     Dosage: 500 MILLIGRAM, 2 CAPSULES AT 8 AM, 12 PM AND 6 PM
     Route: 065
     Dates: start: 20190211, end: 20190324
  27. OLANZAPINE. [Suspect]
     Active Substance: OLANZAPINE
     Indication: PSYCHOTIC DISORDER
     Dosage: 15 MILLIGRAM, ONCE A DAY
     Route: 048
     Dates: start: 20170821
  28. ELIQUIS [Suspect]
     Active Substance: APIXABAN
     Dosage: 10 MILLIGRAM, ONCE A DAY
     Route: 048
     Dates: start: 20170927, end: 20190830
  29. LIPANTHYL [Suspect]
     Active Substance: FENOFIBRATE
     Indication: PSYCHOTIC DISORDER
     Dosage: 145 MILLIGRAM, ONCE A DAY AT 6 PM
     Route: 048
     Dates: start: 20181219
  30. PANSORAL [Concomitant]
     Active Substance: CETALKONIUM CHLORIDE\CHOLINE SALICYLATE
     Indication: PRODUCT USED FOR UNKNOWN INDICATION
     Dosage: 15 GRAM, TWO TIMES A DAY ( 1 APPLICATION AT 8 AM, 12 PM AND 6 PM)
     Route: 065
     Dates: start: 20171221, end: 20171231
  31. ELIQUIS [Suspect]
     Active Substance: APIXABAN
     Dosage: 5 MILLIGRAM (2 TABLET AT 8 AM AND AT 6 PM)
     Route: 065
     Dates: start: 20190830, end: 20190905
  32. ABILIFY [Concomitant]
     Active Substance: ARIPIPRAZOLE
     Indication: PRODUCT USED FOR UNKNOWN INDICATION
     Dosage: 5 MILLIGRAM, 1 TABLET AT 8 AM
     Route: 065
     Dates: start: 20161001, end: 20171105
  33. IMOVANE [Concomitant]
     Active Substance: ZOPICLONE
     Indication: PRODUCT USED FOR UNKNOWN INDICATION
     Dosage: 7.5 MILLIGRAM, ONCE A DAY (1 TABLET AT 8 PM)
     Route: 065
     Dates: start: 20161001

REACTIONS (7)
  - Venous thrombosis [Recovering/Resolving]
  - Therapeutic product effect decreased [Recovering/Resolving]
  - Endometrial adenocarcinoma [Unknown]
  - Deep vein thrombosis [Recovering/Resolving]
  - Uterine cancer [Unknown]
  - Thrombophlebitis [Unknown]
  - Prescribed underdose [Unknown]

NARRATIVE: CASE EVENT DATE: 2018
